FAERS Safety Report 24182515 (Version 1)
Quarter: 2024Q3

REPORT INFORMATION
  Report Type: Report from Study
  Country: US (occurrence: US)
  Receive Date: 20240807
  Receipt Date: 20240807
  Transmission Date: 20241017
  Serious: Yes (Other)
  Sender: pharmaAND
  Company Number: US-Pharmaand-2024000653

PATIENT
  Sex: Female
  Weight: 76.92 kg

DRUGS (1)
  1. RUBRACA [Suspect]
     Active Substance: RUCAPARIB CAMSYLATE
     Indication: Ovarian cancer
     Dosage: 500 MG AM, 250 MG PM
     Route: 048
     Dates: start: 20240308

REACTIONS (1)
  - Stent placement [Not Recovered/Not Resolved]
